FAERS Safety Report 10354690 (Version 3)
Quarter: 2014Q4

REPORT INFORMATION
  Report Type: Spontaneous
  Country: US (occurrence: US)
  Receive Date: 20140731
  Receipt Date: 20141031
  Transmission Date: 20150528
  Serious: Yes (Other)
  Sender: FDA-Public Use
  Company Number: US-PFIZER INC-2014212052

PATIENT
  Age: 90 Year
  Sex: Female
  Weight: 52.15 kg

DRUGS (3)
  1. ATIVAN [Concomitant]
     Active Substance: LORAZEPAM
     Dosage: 0.5 MG, 1X/DAY (BEDTIME)
  2. ZOLOFT [Concomitant]
     Active Substance: SERTRALINE HYDROCHLORIDE
     Indication: DEPRESSION
     Dosage: UNK
  3. CHANTIX [Suspect]
     Active Substance: VARENICLINE TARTRATE
     Indication: SMOKING CESSATION THERAPY
     Dosage: 0.5 MG, 1X/DAY

REACTIONS (11)
  - Accident [Unknown]
  - Pain [Unknown]
  - Dizziness [Unknown]
  - Wrist fracture [Unknown]
  - Rib fracture [Unknown]
  - Malaise [Unknown]
  - Dyspnoea [Unknown]
  - Hand fracture [Unknown]
  - Arthropathy [Unknown]
  - Upper limb fracture [Unknown]
  - Fear [Unknown]
